FAERS Safety Report 4707224-4 (Version None)
Quarter: 2005Q3

REPORT INFORMATION
  Report Type: 
  Country: None (occurrence: None)
  Receive Date: 20050706
  Receipt Date: 20050618
  Transmission Date: 20060218
  Serious: Yes (Other)
  Sender: FDA-Public Use
  Company Number: PHBS2005IN08975

PATIENT
  Age: 8 Year
  Sex: Male

DRUGS (1)
  1. TRIOPTAL [Suspect]
     Indication: POST-TRAUMATIC EPILEPSY
     Dosage: 450 MG/DAY
     Route: 048

REACTIONS (2)
  - ABNORMAL BEHAVIOUR [None]
  - ATTENTION DEFICIT/HYPERACTIVITY DISORDER [None]
